FAERS Safety Report 5402511-9 (Version None)
Quarter: 2007Q3

REPORT INFORMATION
  Report Type: 
  Country: None (occurrence: None)
  Receive Date: 20070801
  Receipt Date: 20060919
  Transmission Date: 20080115
  Serious: No
  Sender: FDA-Public Use
  Company Number: A0619563A

PATIENT
  Sex: Female

DRUGS (7)
  1. IMITREX [Suspect]
     Indication: MIGRAINE
     Dosage: 100MG AS REQUIRED
     Route: 048
     Dates: start: 20060101, end: 20060101
  2. NABUMETONE [Suspect]
     Indication: BURSITIS
     Dosage: 1000MG PER DAY
     Route: 048
  3. PREMARIN [Concomitant]
  4. CODEINE SUL TAB [Concomitant]
  5. VALIUM [Concomitant]
  6. VICODIN [Concomitant]
  7. DIOVAN [Concomitant]

REACTIONS (4)
  - DRUG INEFFECTIVE [None]
  - HYPOAESTHESIA ORAL [None]
  - PARAESTHESIA [None]
  - RASH [None]
